FAERS Safety Report 4419102-9 (Version None)
Quarter: 2004Q3

REPORT INFORMATION
  Report Type: 
  Country: None (occurrence: None)
  Receive Date: 20040806
  Receipt Date: 20040806
  Transmission Date: 20050211
  Serious: Yes (Hospitalization)
  Sender: FDA-Public Use
  Company Number: None

PATIENT
  Age: 56 Year
  Sex: Male
  Weight: 133.8111 kg

DRUGS (13)
  1. LITHIUM CARBONATE CAP [Suspect]
     Indication: BIPOLAR DISORDER
     Dosage: 600 MG QAM AND 900 MG HS
     Dates: start: 19960401, end: 20040601
  2. LITHIUM CARBONATE CAP [Suspect]
     Indication: SCHIZOAFFECTIVE DISORDER
     Dosage: 600 MG QAM AND 900 MG HS
     Dates: start: 19960401, end: 20040601
  3. LORATADINE [Concomitant]
  4. ATENOLOL [Concomitant]
  5. DOCUSATE [Concomitant]
  6. SENNOSIDES [Concomitant]
  7. GEMFIBROZIL [Concomitant]
  8. LISINOPRIL [Concomitant]
  9. MYSTATIN CREAM [Concomitant]
  10. OLANZAPINE [Concomitant]
  11. LOVASTATIN [Concomitant]
  12. TOPIRIMATE [Concomitant]
  13. CLOMIPRAMINE HCL [Concomitant]

REACTIONS (3)
  - ANTIDEPRESSANT DRUG LEVEL INCREASED [None]
  - COGNITIVE DETERIORATION [None]
  - DYSARTHRIA [None]
